FAERS Safety Report 10880829 (Version 1)
Quarter: 2015Q1

REPORT INFORMATION
  Report Type: Spontaneous
  Country: US (occurrence: US)
  Receive Date: 20150303
  Receipt Date: 20150303
  Transmission Date: 20150721
  Serious: No
  Sender: FDA-Public Use
  Company Number: US-BIOGENIDEC-2015BI018433

PATIENT
  Sex: Female

DRUGS (9)
  1. TECFIDERA [Suspect]
     Active Substance: DIMETHYL FUMARATE
     Indication: MULTIPLE SCLEROSIS
     Route: 048
  2. BACLOFEN. [Concomitant]
     Active Substance: BACLOFEN
  3. NAPROXEN. [Concomitant]
     Active Substance: NAPROXEN
  4. POTASSIUM CHLORIDE CRYS ER [Concomitant]
  5. PRAMIPEXOLE DIHYDROCHLORIDE. [Concomitant]
     Active Substance: PRAMIPEXOLE DIHYDROCHLORIDE
  6. MONTELUKAST SODIUM. [Concomitant]
     Active Substance: MONTELUKAST SODIUM
  7. PANLOPRAZOLE SODIUM [Concomitant]
  8. LISINOPRIL. [Concomitant]
     Active Substance: LISINOPRIL
  9. SIMVASTATIN. [Concomitant]
     Active Substance: SIMVASTATIN

REACTIONS (1)
  - Bronchitis [Unknown]
